FAERS Safety Report 6871646-6 (Version None)
Quarter: 2010Q3

REPORT INFORMATION
  Report Type: 
  Country: None (occurrence: None)
  Receive Date: 20100723
  Receipt Date: 20100713
  Transmission Date: 20110219
  Serious: Yes (Hospitalization)
  Sender: FDA-Public Use
  Company Number: US-JNJFOC-20100703829

PATIENT
  Age: 38 Year
  Sex: Female
  Weight: 84.37 kg

DRUGS (10)
  1. EXTRA STRENGTH TYLENOL [Suspect]
     Indication: MYALGIA
     Dosage: AS NEEDED, EVERY 2 DAYS, 2 PILLS TWICE IN DAY
     Route: 048
  2. EXTRA STRENGTH TYLENOL [Suspect]
     Indication: HEADACHE
     Dosage: AS NEEDED, EVERY 2 DAYS, 2 PILLS TWICE IN DAY
     Route: 048
  3. TYLENOL (CAPLET) [Suspect]
  4. TYLENOL (CAPLET) [Suspect]
     Indication: PRODUCT USED FOR UNKNOWN INDICATION
  5. WELLBUTRIN [Concomitant]
     Indication: DEPRESSION
     Dosage: 3 YEARS
  6. WELLBUTRIN [Concomitant]
     Indication: ATTENTION DEFICIT/HYPERACTIVITY DISORDER
     Dosage: 3 YEARS
  7. LEXAPRO [Concomitant]
     Indication: ANXIETY
     Dosage: 1 YEAR
  8. LEXAPRO [Concomitant]
     Indication: MENSTRUAL DISORDER
     Dosage: 1 YEAR
  9. NEXIUM [Concomitant]
     Indication: GASTROOESOPHAGEAL REFLUX DISEASE
     Dosage: 5 YEARS
  10. ADVAIR DISKUS 100/50 [Concomitant]
     Indication: ASTHMA
     Dosage: 10 YEARS

REACTIONS (5)
  - ABDOMINAL PAIN UPPER [None]
  - DIZZINESS [None]
  - MENINGIOMA [None]
  - PRODUCT QUALITY ISSUE [None]
  - SYNCOPE [None]
